FAERS Safety Report 21470162 (Version 2)
Quarter: 2022Q4

REPORT INFORMATION
  Report Type: Spontaneous
  Country: JP (occurrence: JP)
  Receive Date: 20221018
  Receipt Date: 20221104
  Transmission Date: 20230112
  Serious: Yes (Other)
  Sender: FDA-Public Use
  Company Number: JP-SA-2022SA416575

PATIENT
  Age: 67 Year
  Sex: Female

DRUGS (2)
  1. CLOPIDOGREL BISULFATE [Suspect]
     Active Substance: CLOPIDOGREL BISULFATE
     Indication: Vertebral artery aneurysm
     Dosage: 75 MG/DAY
     Route: 065
  2. ASPIRIN [Concomitant]
     Active Substance: ASPIRIN
     Indication: Vertebral artery aneurysm
     Dosage: 100 MG/DAY
     Route: 065

REACTIONS (8)
  - Shock haemorrhagic [Recovered/Resolved]
  - Blood pressure decreased [Recovered/Resolved]
  - Retroperitoneal haematoma [Recovered/Resolved]
  - Abdominal distension [Recovered/Resolved]
  - Abdominal tenderness [Recovered/Resolved]
  - Subcutaneous haematoma [Recovered/Resolved]
  - Peritoneal haematoma [Recovered/Resolved]
  - Abdominal wall haematoma [Recovered/Resolved]
